FAERS Safety Report 8082248-0 (Version None)
Quarter: 2012Q1

REPORT INFORMATION
  Report Type: 
  Country: None (occurrence: None)
  Receive Date: 20120127
  Receipt Date: 20110215
  Transmission Date: 20120608
  Serious: No
  Sender: FDA-Public Use
  Company Number: US-ABBOTT-11P-163-0705408-00

PATIENT
  Age: 60 Year
  Sex: Female

DRUGS (5)
  1. FOLIC ACID [Concomitant]
     Indication: VITAMIN SUPPLEMENTATION
     Dosage: ON OPPOSITE DAYS OF METHOTREXATE
  2. BENACORT [Concomitant]
     Indication: HYPERTENSION
     Dosage: 40-25 MG, DAILY
  3. METHOTREXATE [Concomitant]
     Indication: PSORIATIC ARTHROPATHY
  4. HUMIRA [Suspect]
     Indication: PSORIATIC ARTHROPATHY
     Dates: start: 20110103
  5. METFFORMIN HYDROCHLORIDE [Concomitant]
     Indication: TYPE 2 DIABETES MELLITUS

REACTIONS (6)
  - INFLUENZA LIKE ILLNESS [None]
  - INJECTION SITE WARMTH [None]
  - INJECTION SITE PRURITUS [None]
  - SPUTUM DISCOLOURED [None]
  - INJECTION SITE ERYTHEMA [None]
  - PRODUCTIVE COUGH [None]
